FAERS Safety Report 24911200 (Version 1)
Quarter: 2025Q1

REPORT INFORMATION
  Report Type: Spontaneous
  Country: US (occurrence: None)
  Receive Date: 20250131
  Receipt Date: 20250131
  Transmission Date: 20250408
  Serious: Yes (Death)
  Sender: FDA-CTU
  Company Number: None

PATIENT
  Age: 95 Year
  Sex: Male

DRUGS (8)
  1. COLLAGENASE SANTYL [Suspect]
     Active Substance: COLLAGENASE CLOSTRIDIUM HISTOLYTICUM
     Indication: Wound
     Dosage: FREQUENCY : DAILY;?
     Route: 061
     Dates: start: 20240930, end: 20250131
  2. ASPIRIN 81MG EC LOW DOSE TABLETS [Concomitant]
  3. METOPROLOL SUCCINATE [Concomitant]
     Active Substance: METOPROLOL SUCCINATE
  4. QUETIAPINE [Concomitant]
     Active Substance: QUETIAPINE
  5. SPIRONOLACTONE 25MG TABLETS [Concomitant]
  6. STOOL SOFTENER 100MG CAPSULES [Concomitant]
  7. ZOLOFT 100MG TABLETS [Concomitant]
  8. MILK OF MAGNESIA SUSP (CHERRY) [Concomitant]

REACTIONS (1)
  - Death [None]

NARRATIVE: CASE EVENT DATE: 20250131
